FAERS Safety Report 8211708-4 (Version None)
Quarter: 2012Q1

REPORT INFORMATION
  Report Type: 
  Country: None (occurrence: None)
  Receive Date: 20120315
  Receipt Date: 20120313
  Transmission Date: 20120608
  Serious: Yes (Other)
  Sender: FDA-Public Use
  Company Number: US-PFIZER INC-2012067299

PATIENT
  Sex: Female
  Weight: 77.098 kg

DRUGS (7)
  1. LITHIUM CARBONATE [Suspect]
     Indication: AFFECTIVE DISORDER
     Dosage: 600 MG, DAILY (AT NIGHT)
  2. CLONAZEPAM [Suspect]
     Indication: SLEEP DISORDER
  3. CHANTIX [Suspect]
     Indication: SMOKING CESSATION THERAPY
     Dosage: UNK
  4. CLONAZEPAM [Suspect]
     Indication: ANXIETY
     Dosage: 4 MG, DAILY
  5. PRAZOSIN HCL [Suspect]
     Indication: HYPERTENSION
  6. AMBIEN [Suspect]
     Indication: SLEEP DISORDER
     Dosage: 10MG TWO TABLETS TOGETHER DAILY AT NIGHT
  7. PRAZOSIN HCL [Suspect]
     Indication: SLEEP TERROR
     Dosage: 4 MG, DAILY

REACTIONS (5)
  - PAIN [None]
  - ABORTION SPONTANEOUS [None]
  - BACK DISORDER [None]
  - THYROID DISORDER [None]
  - ABNORMAL DREAMS [None]
